FAERS Safety Report 9511364 (Version 1)
Quarter: 2013Q3

REPORT INFORMATION
  Report Type: Spontaneous
  Country: IT (occurrence: IT)
  Receive Date: 20130910
  Receipt Date: 20130910
  Transmission Date: 20140515
  Serious: Yes (Other)
  Sender: FDA-Public Use
  Company Number: IT-JNJFOC-20130816651

PATIENT
  Age: 6 Month
  Sex: 0

DRUGS (1)
  1. NORETHISTERONE [Suspect]
     Indication: PRODUCT USED FOR UNKNOWN INDICATION
     Route: 048

REACTIONS (2)
  - Paraesthesia [Unknown]
  - Drug administered to patient of inappropriate age [Unknown]
